FAERS Safety Report 8347685-5 (Version None)
Quarter: 2012Q2

REPORT INFORMATION
  Report Type: 
  Country: None (occurrence: None)
  Receive Date: 20120509
  Receipt Date: 20120501
  Transmission Date: 20120825
  Serious: Yes (Hospitalization, Disabling, Other)
  Sender: FDA-Public Use
  Company Number: US-MERCK-1103USA02688

PATIENT
  Age: 59 Year
  Sex: Female
  Weight: 68 kg

DRUGS (8)
  1. FOSAMAX [Suspect]
     Indication: OSTEOPOROSIS
     Route: 048
     Dates: start: 20020101, end: 20051201
  2. ARTHROTEC [Concomitant]
     Indication: OSTEOARTHRITIS
     Route: 048
     Dates: start: 20000101
  3. FOSAMAX [Suspect]
     Route: 048
     Dates: start: 20060401, end: 20060601
  4. FOSAMAX [Suspect]
     Route: 048
     Dates: start: 20060701, end: 20071201
  5. SYNTHROID [Concomitant]
     Indication: HYPOTHYROIDISM
     Route: 065
     Dates: start: 19650101
  6. ACTONEL [Suspect]
     Indication: OSTEOPOROSIS
     Route: 048
     Dates: start: 20090801, end: 20091101
  7. EVISTA [Suspect]
     Route: 048
  8. ALENDRONATE SODIUM [Suspect]
     Indication: OSTEOPOROSIS
     Route: 048
     Dates: start: 20080301, end: 20090701

REACTIONS (60)
  - OSTEONECROSIS OF JAW [None]
  - DEAFNESS UNILATERAL [None]
  - PARKINSON'S DISEASE [None]
  - ANXIETY DISORDER [None]
  - INTERVERTEBRAL DISC DEGENERATION [None]
  - FOOT DEFORMITY [None]
  - HYPOAESTHESIA [None]
  - MOUTH BREATHING [None]
  - VAGINAL INFECTION [None]
  - TYMPANOSCLEROSIS [None]
  - TOOTH FRACTURE [None]
  - TOOTH DISORDER [None]
  - OSTEONECROSIS [None]
  - HAND FRACTURE [None]
  - PARESIS [None]
  - OSTEOARTHRITIS [None]
  - ACTINIC KERATOSIS [None]
  - ORAL HERPES [None]
  - POST PROCEDURAL COMPLICATION [None]
  - PERIODONTITIS [None]
  - VISION BLURRED [None]
  - JAW DISORDER [None]
  - EYELID PTOSIS [None]
  - PANIC ATTACK [None]
  - ORAL PAIN [None]
  - SKIN EXFOLIATION [None]
  - SINUS DISORDER [None]
  - SPONDYLOLISTHESIS [None]
  - TRISMUS [None]
  - DYSAESTHESIA [None]
  - ARRHYTHMIA [None]
  - OSTEOMYELITIS CHRONIC [None]
  - HYPERGLYCAEMIA [None]
  - PERIARTHRITIS [None]
  - FRACTURE NONUNION [None]
  - ROTATOR CUFF SYNDROME [None]
  - CONTUSION [None]
  - DEPRESSION [None]
  - GINGIVAL OEDEMA [None]
  - DYSGEUSIA [None]
  - IMPAIRED HEALING [None]
  - TOOTH ABSCESS [None]
  - NEUROPATHY PERIPHERAL [None]
  - TINNITUS [None]
  - HYPOTENSION [None]
  - ARTHROPATHY [None]
  - ARTHRITIS [None]
  - CARPAL TUNNEL SYNDROME [None]
  - PAROSMIA [None]
  - URINARY INCONTINENCE [None]
  - INJURY [None]
  - DENTAL CARIES [None]
  - FOOT FRACTURE [None]
  - BONE LOSS [None]
  - VIITH NERVE PARALYSIS [None]
  - POLLAKIURIA [None]
  - JOINT INSTABILITY [None]
  - INCREASED TENDENCY TO BRUISE [None]
  - CATARACT [None]
  - BRONCHITIS [None]
